FAERS Safety Report 10162957 (Version 1)
Quarter: 2014Q2

REPORT INFORMATION
  Report Type: Spontaneous
  Country: US (occurrence: US)
  Receive Date: 20140509
  Receipt Date: 20140509
  Transmission Date: 20141212
  Serious: No
  Sender: FDA-Public Use
  Company Number: US-PFIZER INC-2014126551

PATIENT
  Age: 52 Year
  Sex: Female
  Weight: 93.42 kg

DRUGS (2)
  1. LYRICA [Suspect]
     Indication: NERVE INJURY
     Dosage: 50 MG, 1X/DAY
     Dates: start: 20140428, end: 20140505
  2. LYRICA [Suspect]
     Dosage: 50 MG, 2X/DAY
     Dates: start: 20140505

REACTIONS (1)
  - Pain in extremity [Recovering/Resolving]
